FAERS Safety Report 20796205 (Version 4)
Quarter: 2023Q1

REPORT INFORMATION
  Report Type: Spontaneous
  Country: US (occurrence: US)
  Receive Date: 20220506
  Receipt Date: 20230217
  Transmission Date: 20230418
  Serious: No
  Sender: FDA-Public Use
  Company Number: US-BIOGEN-2022BI01118567

PATIENT
  Sex: Female

DRUGS (9)
  1. VUMERITY [Suspect]
     Active Substance: DIROXIMEL FUMARATE
     Indication: Multiple sclerosis
     Dosage: STARTING DOSE
     Route: 050
     Dates: start: 20200218
  2. VUMERITY [Suspect]
     Active Substance: DIROXIMEL FUMARATE
     Dosage: MAINTENANCE DOSE
     Route: 050
  3. VUMERITY [Suspect]
     Active Substance: DIROXIMEL FUMARATE
     Route: 050
  4. VITAMIN D3 [Concomitant]
     Active Substance: CHOLECALCIFEROL
     Route: 050
  5. XANAX [Concomitant]
     Active Substance: ALPRAZOLAM
     Route: 050
  6. ADDERALL [Concomitant]
     Active Substance: AMPHETAMINE ASPARTATE\AMPHETAMINE SULFATE\DEXTROAMPHETAMINE SACCHARATE\DEXTROAMPHETAMINE SULFATE
     Route: 050
  7. BACLOFEN [Concomitant]
     Active Substance: BACLOFEN
     Route: 050
  8. CYMBALTA [Concomitant]
     Active Substance: DULOXETINE HYDROCHLORIDE
     Route: 050
  9. BIOTIN [Concomitant]
     Active Substance: BIOTIN
     Route: 050

REACTIONS (10)
  - Product dose omission issue [Unknown]
  - Gait inability [Unknown]
  - Impaired self-care [Unknown]
  - Aphasia [Unknown]
  - Central nervous system lesion [Unknown]
  - Paraesthesia [Unknown]
  - Immune thrombocytopenia [Unknown]
  - Muscular weakness [Unknown]
  - Alopecia [Unknown]
  - Rash [Unknown]
